FAERS Safety Report 10623348 (Version 2)
Quarter: 2014Q4

REPORT INFORMATION
  Report Type: Spontaneous
  Country: US (occurrence: US)
  Receive Date: 20141203
  Receipt Date: 20141203
  Transmission Date: 20150529
  Serious: No
  Sender: FDA-Public Use
  Company Number: US-MALLINCKRODT-T201402876

PATIENT
  Age: 64 Year
  Sex: Female

DRUGS (3)
  1. EXALGO [Suspect]
     Active Substance: HYDROMORPHONE HYDROCHLORIDE
     Dosage: 16 MG, TWO DAILY
     Route: 048
     Dates: start: 2012, end: 201404
  2. DILAUDID [Concomitant]
     Active Substance: HYDROMORPHONE HYDROCHLORIDE
     Dosage: UNK
  3. EXALGO [Suspect]
     Active Substance: HYDROMORPHONE HYDROCHLORIDE
     Indication: PAIN
     Dosage: 16 MG, TID
     Route: 048
     Dates: start: 201404

REACTIONS (3)
  - Neuralgia [Recovering/Resolving]
  - Intervertebral disc protrusion [Unknown]
  - Off label use [Unknown]

NARRATIVE: CASE EVENT DATE: 201405
